FAERS Safety Report 22213113 (Version 1)
Quarter: 2023Q2

REPORT INFORMATION
  Report Type: Report from Study
  Country: US (occurrence: US)
  Receive Date: 20230414
  Receipt Date: 20230414
  Transmission Date: 20230722
  Serious: Yes (Hospitalization)
  Sender: FDA-Public Use
  Company Number: US-EXELIXIS-XL18423059974

PATIENT

DRUGS (4)
  1. PLACEBO [Suspect]
     Active Substance: UNSPECIFIED INGREDIENT
     Indication: Carcinoid tumour
     Dosage: 60 MG, QD
     Route: 048
     Dates: start: 20211029
  2. CABOZANTINIB [Suspect]
     Active Substance: CABOZANTINIB
     Indication: Carcinoid tumour
     Dosage: 60 MG, QD
     Route: 048
     Dates: start: 20211029
  3. PLACEBO [Suspect]
     Active Substance: UNSPECIFIED INGREDIENT
     Dosage: 60 MG, QD
     Route: 048
     Dates: start: 20211103
  4. CABOZANTINIB [Suspect]
     Active Substance: CABOZANTINIB
     Dosage: 60 MG, QD
     Route: 048
     Dates: start: 20211103

REACTIONS (2)
  - Myocardial ischaemia [Not Recovered/Not Resolved]
  - Abdominal pain [Recovered/Resolved]

NARRATIVE: CASE EVENT DATE: 20211029
